FAERS Safety Report 8001292-2 (Version None)
Quarter: 2011Q4

REPORT INFORMATION
  Report Type: 
  Country: None (occurrence: None)
  Receive Date: 20111219
  Receipt Date: 20111209
  Transmission Date: 20120403
  Serious: Yes (Hospitalization)
  Sender: FDA-Public Use
  Company Number: ALK_01804_2011

PATIENT
  Age: 44 Year
  Sex: Female
  Weight: 72.5755 kg

DRUGS (1)
  1. VIVITROL [Suspect]
     Indication: ALCOHOLISM
     Dosage: 380 MG 1X/MONTH INTRAMUSCULAR
     Route: 030
     Dates: start: 20110520, end: 20110520

REACTIONS (1)
  - INJECTION SITE ABSCESS [None]
